FAERS Safety Report 10358621 (Version 1)
Quarter: 2014Q3

REPORT INFORMATION
  Report Type: Spontaneous
  Country: US (occurrence: US)
  Receive Date: 20140803
  Receipt Date: 20140803
  Transmission Date: 20150326
  Serious: Yes (Hospitalization)
  Sender: FDA-Public Use
  Company Number: US-ACTELION-A-NJ2014-102782

PATIENT
  Age: 4 Year
  Sex: Female

DRUGS (5)
  1. LETAIRIS [Concomitant]
     Active Substance: AMBRISENTAN
  2. TRACLEER [Suspect]
     Active Substance: BOSENTAN\BOSENTAN MONOHYDRATE
     Indication: PULMONARY ARTERIAL HYPERTENSION
     Dosage: UNK
     Route: 048
  3. SILDENAFIL [Concomitant]
     Active Substance: SILDENAFIL
  4. COUMADIN [Concomitant]
     Active Substance: WARFARIN SODIUM
  5. REMODULIN [Concomitant]
     Active Substance: TREPROSTINIL

REACTIONS (1)
  - Lung transplant [Unknown]

NARRATIVE: CASE EVENT DATE: 20140721
